FAERS Safety Report 20654763 (Version 1)
Quarter: 2022Q1

REPORT INFORMATION
  Report Type: Spontaneous
  Country: US (occurrence: None)
  Receive Date: 20220330
  Receipt Date: 20220330
  Transmission Date: 20220424
  Serious: Yes (Disabling)
  Sender: FDA-Public Use
  Company Number: None

PATIENT
  Age: 67 Year
  Sex: Male
  Weight: 103.5 kg

DRUGS (1)
  1. FIRDAPSE [Suspect]
     Active Substance: AMIFAMPRIDINE PHOSPHATE
     Indication: Myasthenic syndrome

REACTIONS (5)
  - Product substitution issue [None]
  - Drug ineffective [None]
  - Asthenia [None]
  - Product complaint [None]
  - Product availability issue [None]

NARRATIVE: CASE EVENT DATE: 20220315
